FAERS Safety Report 12722350 (Version 1)
Quarter: 2016Q3

REPORT INFORMATION
  Report Type: Spontaneous
  Country: US (occurrence: US)
  Receive Date: 20160907
  Receipt Date: 20160907
  Transmission Date: 20161109
  Serious: Yes (Hospitalization, Other)
  Sender: FDA-Public Use
  Company Number: US-BEH-2016073243

PATIENT
  Sex: Male
  Weight: 90.7 kg

DRUGS (16)
  1. MAGNESIUM OXIDE. [Concomitant]
     Active Substance: MAGNESIUM OXIDE
  2. DIPHENHYDRAMINE. [Concomitant]
     Active Substance: DIPHENHYDRAMINE
  3. SIMVASTATIN. [Concomitant]
     Active Substance: SIMVASTATIN
  4. RANITIDINE. [Concomitant]
     Active Substance: RANITIDINE
  5. HEPARIN [Concomitant]
     Active Substance: HEPARIN SODIUM
  6. LASIX [Concomitant]
     Active Substance: FUROSEMIDE
  7. SODIUM CHLORIDE. [Concomitant]
     Active Substance: SODIUM CHLORIDE
  8. METFORMIN [Concomitant]
     Active Substance: METFORMIN HYDROCHLORIDE
  9. PRIVIGEN [Suspect]
     Active Substance: HUMAN IMMUNOGLOBULIN G
     Indication: CHRONIC INFLAMMATORY DEMYELINATING POLYRADICULONEUROPATHY
     Dosage: 50 G, UNK
     Route: 042
     Dates: start: 20160413
  10. FOLIC ACID. [Concomitant]
     Active Substance: FOLIC ACID
  11. CARVEDILOL. [Concomitant]
     Active Substance: CARVEDILOL
  12. PRADAXA [Concomitant]
     Active Substance: DABIGATRAN ETEXILATE MESYLATE
  13. EPIPEN [Concomitant]
     Active Substance: EPINEPHRINE
  14. ACETAMINOPHEN. [Concomitant]
     Active Substance: ACETAMINOPHEN
  15. B COMPLEX                          /00212701/ [Concomitant]
     Active Substance: NIACINAMIDE\PYRIDOXINE\RIBOFLAVIN\THIAMINE
  16. NORMAL SALINE [Concomitant]
     Active Substance: SODIUM CHLORIDE

REACTIONS (3)
  - Peripheral swelling [Unknown]
  - Deep vein thrombosis [Unknown]
  - B-cell lymphoma [Unknown]
